FAERS Safety Report 11131563 (Version 1)
Quarter: 2015Q2

REPORT INFORMATION
  Report Type: Spontaneous
  Country: US (occurrence: US)
  Receive Date: 20150522
  Receipt Date: 20150522
  Transmission Date: 20150821
  Serious: Yes (Other)
  Sender: FDA-Public Use
  Company Number: US-JNJFOC-20150510680

PATIENT
  Sex: Female

DRUGS (1)
  1. LISTERINE TOTAL CARE [Suspect]
     Active Substance: SODIUM FLUORIDE
     Indication: PRODUCT USED FOR UNKNOWN INDICATION
     Route: 048

REACTIONS (5)
  - Lip blister [Unknown]
  - Blood blister [Unknown]
  - Lacrimation increased [Unknown]
  - Oral discomfort [Unknown]
  - Oral mucosal blistering [Unknown]
